FAERS Safety Report 24865433 (Version 1)
Quarter: 2025Q1

REPORT INFORMATION
  Report Type: Report from Study
  Country: US (occurrence: US)
  Receive Date: 20250121
  Receipt Date: 20250121
  Transmission Date: 20250408
  Serious: Yes (Hospitalization)
  Sender: ROCHE
  Company Number: US-ROCHE-10000182189

PATIENT
  Age: 53 Year
  Sex: Female
  Weight: 121 kg

DRUGS (2)
  1. XOLAIR PFS [Suspect]
     Active Substance: OMALIZUMAB
     Indication: Asthma
     Dosage: DOSE- 150 MG?ON 29-JUN-2023, SHE RECEIVED LAST INJECTION
     Route: 058
  2. XOLAIR PFS [Suspect]
     Active Substance: OMALIZUMAB
     Route: 065
     Dates: start: 20231019

REACTIONS (2)
  - Pneumonia [Not Recovered/Not Resolved]
  - Nasopharyngitis [Unknown]
